FAERS Safety Report 7061978-3 (Version None)
Quarter: 2010Q4

REPORT INFORMATION
  Report Type: 
  Country: None (occurrence: None)
  Receive Date: 20101026
  Receipt Date: 20101008
  Transmission Date: 20110411
  Serious: Yes (Death, Other)
  Sender: FDA-Public Use
  Company Number: US-BAXTER-2009BH014111

PATIENT
  Age: 20 Year
  Sex: Female

DRUGS (53)
  1. HEPARIN SODIUM INJECTION [Suspect]
     Indication: HAEMODIALYSIS
     Route: 042
     Dates: start: 20071101, end: 20080401
  2. HEPARIN SODIUM INJECTION [Suspect]
     Indication: CARDIOVASCULAR EVENT PROPHYLAXIS
     Route: 042
     Dates: start: 20071101, end: 20080401
  3. HEPARIN SODIUM INJECTION [Suspect]
     Indication: AORTIC VALVE REPLACEMENT
     Route: 042
     Dates: start: 20071101, end: 20080401
  4. HEPARIN SODIUM INJECTION [Suspect]
     Indication: MITRAL VALVE REPAIR
     Route: 042
     Dates: start: 20071101, end: 20080401
  5. HEPARIN SODIUM INJECTION [Suspect]
     Indication: ATRIAL SEPTAL DEFECT REPAIR
     Route: 042
     Dates: start: 20071101, end: 20080401
  6. HEPARIN SODIUM INJECTION [Suspect]
     Indication: INTRAVENOUS CATHETER MANAGEMENT
     Route: 042
     Dates: start: 20071101, end: 20080401
  7. HEPARIN SODIUM INJECTION [Suspect]
     Route: 042
     Dates: start: 20071101, end: 20080401
  8. HEPARIN SODIUM INJECTION [Suspect]
     Route: 042
     Dates: start: 20071101, end: 20080401
  9. HEPARIN SODIUM INJECTION [Suspect]
     Route: 042
     Dates: start: 20071101, end: 20080401
  10. HEPARIN SODIUM INJECTION [Suspect]
     Route: 042
     Dates: start: 20071101, end: 20080401
  11. HEPARIN SODIUM INJECTION [Suspect]
     Route: 042
     Dates: start: 20071101, end: 20080401
  12. HEPARIN SODIUM INJECTION [Suspect]
     Route: 042
     Dates: start: 20071101, end: 20080401
  13. HEPARIN SODIUM INJECTION [Suspect]
     Route: 042
     Dates: start: 20080413, end: 20080601
  14. HEPARIN SODIUM INJECTION [Suspect]
     Route: 042
     Dates: start: 20080413, end: 20080601
  15. HEPARIN SODIUM INJECTION [Suspect]
     Route: 042
     Dates: start: 20080413, end: 20080601
  16. HEPARIN SODIUM INJECTION [Suspect]
     Route: 042
     Dates: start: 20080413, end: 20080601
  17. HEPARIN SODIUM INJECTION [Suspect]
     Route: 042
     Dates: start: 20080413, end: 20080601
  18. HEPARIN SODIUM INJECTION [Suspect]
     Route: 042
     Dates: start: 20080413, end: 20080601
  19. HEPARIN SODIUM INJECTION [Suspect]
     Route: 016
     Dates: start: 20080422, end: 20080422
  20. HEPARIN SODIUM INJECTION [Suspect]
     Route: 016
     Dates: start: 20080422, end: 20080422
  21. HEPARIN SODIUM INJECTION [Suspect]
     Route: 016
     Dates: start: 20080422, end: 20080422
  22. HEPARIN SODIUM INJECTION [Suspect]
     Route: 016
     Dates: start: 20080422, end: 20080422
  23. HEPARIN SODIUM INJECTION [Suspect]
     Route: 016
     Dates: start: 20080422, end: 20080422
  24. HEPARIN SODIUM INJECTION [Suspect]
     Route: 016
     Dates: start: 20080422, end: 20080422
  25. HEPARIN SODIUM INJECTION [Suspect]
     Route: 050
     Dates: start: 20080422, end: 20080422
  26. HEPARIN SODIUM INJECTION [Suspect]
     Route: 050
     Dates: start: 20080422, end: 20080422
  27. HEPARIN SODIUM INJECTION [Suspect]
     Route: 050
     Dates: start: 20080422, end: 20080422
  28. HEPARIN SODIUM INJECTION [Suspect]
     Route: 050
     Dates: start: 20080422, end: 20080422
  29. HEPARIN SODIUM INJECTION [Suspect]
     Route: 050
     Dates: start: 20080422, end: 20080422
  30. HEPARIN SODIUM INJECTION [Suspect]
     Route: 050
     Dates: start: 20080422, end: 20080422
  31. HEPARIN SODIUM INJECTION [Suspect]
     Route: 042
     Dates: start: 20080424, end: 20080523
  32. HEPARIN SODIUM INJECTION [Suspect]
     Route: 042
     Dates: start: 20080424, end: 20080523
  33. HEPARIN SODIUM INJECTION [Suspect]
     Route: 042
     Dates: start: 20080424, end: 20080523
  34. HEPARIN SODIUM INJECTION [Suspect]
     Route: 042
     Dates: start: 20080424, end: 20080523
  35. HEPARIN SODIUM INJECTION [Suspect]
     Route: 042
     Dates: start: 20080424, end: 20080523
  36. HEPARIN SODIUM INJECTION [Suspect]
     Route: 042
     Dates: start: 20080424, end: 20080523
  37. HEPARIN SODIUM 5,000 UNITS IN DEXTROSE 5% [Suspect]
     Indication: THROMBOSIS PROPHYLAXIS
     Route: 042
     Dates: start: 20080413, end: 20080425
  38. CATAPRES                                /USA/ [Concomitant]
     Indication: PRODUCT USED FOR UNKNOWN INDICATION
     Route: 065
  39. COUMADIN [Concomitant]
     Indication: PRODUCT USED FOR UNKNOWN INDICATION
     Route: 065
  40. FOLIC ACID [Concomitant]
     Indication: PRODUCT USED FOR UNKNOWN INDICATION
     Route: 065
  41. LISINOPRIL [Concomitant]
     Indication: PRODUCT USED FOR UNKNOWN INDICATION
     Route: 065
  42. PREDNISONE [Concomitant]
     Indication: PRODUCT USED FOR UNKNOWN INDICATION
     Route: 065
  43. RENA-VITE [Concomitant]
     Indication: PRODUCT USED FOR UNKNOWN INDICATION
     Route: 065
  44. RENAGEL [Concomitant]
     Indication: PRODUCT USED FOR UNKNOWN INDICATION
     Route: 065
  45. PHOSLO [Concomitant]
     Indication: PRODUCT USED FOR UNKNOWN INDICATION
     Route: 048
  46. WARFARIN SODIUM [Concomitant]
     Indication: PRODUCT USED FOR UNKNOWN INDICATION
     Route: 048
  47. PREDNISONE [Concomitant]
     Route: 048
  48. CELEBREX [Concomitant]
     Indication: PRODUCT USED FOR UNKNOWN INDICATION
     Route: 048
  49. PROCARDIA XL [Concomitant]
     Indication: PRODUCT USED FOR UNKNOWN INDICATION
     Route: 048
  50. RENOVATE [Concomitant]
     Indication: PRODUCT USED FOR UNKNOWN INDICATION
     Route: 048
  51. PLAQUENIL [Concomitant]
     Indication: PRODUCT USED FOR UNKNOWN INDICATION
     Route: 048
  52. METOPROLOL [Concomitant]
     Indication: PRODUCT USED FOR UNKNOWN INDICATION
     Route: 048
  53. COZAAR [Concomitant]
     Indication: PRODUCT USED FOR UNKNOWN INDICATION
     Route: 048

REACTIONS (27)
  - ABDOMINAL PAIN [None]
  - ANGIOEDEMA [None]
  - BURNING SENSATION [None]
  - CARDIAC ARREST [None]
  - CARDIAC FAILURE CONGESTIVE [None]
  - CEREBROVASCULAR ACCIDENT [None]
  - CHEST PAIN [None]
  - CONVULSION [None]
  - DEATH [None]
  - DEVICE RELATED INFECTION [None]
  - DIARRHOEA [None]
  - DIZZINESS [None]
  - DYSPNOEA [None]
  - ENDOCARDITIS [None]
  - FLUSHING [None]
  - INFECTION SUSCEPTIBILITY INCREASED [None]
  - NAUSEA [None]
  - PARAESTHESIA [None]
  - PERICARDIAL EFFUSION [None]
  - PLEURAL EFFUSION [None]
  - PNEUMONIA [None]
  - PRURITUS [None]
  - STAPHYLOCOCCAL SEPSIS [None]
  - THIRST [None]
  - THROMBOCYTOPENIA [None]
  - URTICARIA [None]
  - WHEEZING [None]
